FAERS Safety Report 23493522 (Version 1)
Quarter: 2024Q1

REPORT INFORMATION
  Report Type: Spontaneous
  Country: US (occurrence: None)
  Receive Date: 20240206
  Receipt Date: 20240206
  Transmission Date: 20240410
  Serious: Yes (Hospitalization)
  Sender: FDA-Public Use
  Company Number: None

PATIENT
  Age: 74 Year
  Sex: Female

DRUGS (13)
  1. OPSUMIT [Suspect]
     Active Substance: MACITENTAN
     Indication: Pulmonary hypertension
     Dosage: FREQUENCY : DAILY;?
     Route: 048
     Dates: start: 20230217
  2. SILDENAFIL [Concomitant]
  3. OXYGEN INTRANASAL [Concomitant]
  4. ALPRAZOLAM [Concomitant]
  5. DULOXETINE [Concomitant]
  6. FLONASE [Concomitant]
     Active Substance: FLUTICASONE PROPIONATE
  7. FUROSEMIDE [Concomitant]
  8. SIMVATSTATIN [Concomitant]
  9. METOPROLOL [Concomitant]
  10. METFORMIN [Concomitant]
  11. POTASSIUM CHLORIDE [Concomitant]
  12. OMEPRAZOLE [Concomitant]
  13. MYCOPHENOLATE [Concomitant]

REACTIONS (7)
  - Nausea [None]
  - Vomiting [None]
  - Diarrhoea [None]
  - Acute respiratory failure [None]
  - Pneumonia [None]
  - Septic shock [None]
  - Pulseless electrical activity [None]

NARRATIVE: CASE EVENT DATE: 20231220
